FAERS Safety Report 5379058-1 (Version None)
Quarter: 2007Q3

REPORT INFORMATION
  Report Type: 
  Country: None (occurrence: None)
  Receive Date: 20070705
  Receipt Date: 20070626
  Transmission Date: 20080115
  Serious: Yes (Other)
  Sender: FDA-Public Use
  Company Number: US-ROCHE-504319

PATIENT
  Age: 57 Year
  Sex: Female

DRUGS (1)
  1. BONIVA [Suspect]
     Indication: DRUG USE FOR UNKNOWN INDICATION
     Route: 065
     Dates: start: 20070624

REACTIONS (4)
  - DYSPNOEA [None]
  - HEMIPLEGIA [None]
  - MYOCARDIAL INFARCTION [None]
  - PAIN [None]
